FAERS Safety Report 6912851-X (Version None)
Quarter: 2010Q3

REPORT INFORMATION
  Report Type: 
  Country: None (occurrence: None)
  Receive Date: 20100806
  Receipt Date: 20090219
  Transmission Date: 20110219
  Serious: No
  Sender: FDA-Public Use
  Company Number: US-PFIZER INC-2009174966

PATIENT
  Sex: Female

DRUGS (3)
  1. DETROL LA [Suspect]
  2. AVAPRO [Concomitant]
     Dosage: UNK
  3. VERAPAMIL HYDROCHLORIDE [Concomitant]
     Dosage: UNK

REACTIONS (1)
  - EYE DISORDER [None]
